FAERS Safety Report 15894882 (Version 1)
Quarter: 2019Q1

REPORT INFORMATION
  Report Type: Spontaneous
  Country: US (occurrence: US)
  Receive Date: 20190109
  Receipt Date: 20190109
  Transmission Date: 20190417
  Serious: Yes (Death)
  Sender: FDA-Public Use
  Company Number: None

PATIENT
  Sex: Female

DRUGS (12)
  1. POT CL [Concomitant]
  2. SERTEALINE [Concomitant]
  3. WARFARIN [Concomitant]
     Active Substance: WARFARIN
  4. COSENTYX [Suspect]
     Active Substance: SECUKINUMAB
     Indication: PSORIASIS
     Dosage: ?          OTHER FREQUENCY:QWK FOR 5 WKS;?
     Route: 058
     Dates: start: 20181127, end: 20181220
  5. PENICILLN [Concomitant]
  6. ELIQUS [Concomitant]
  7. DIGOX [Concomitant]
     Active Substance: DIGOXIN
  8. METOLAZONE. [Concomitant]
     Active Substance: METOLAZONE
  9. ATROVASTATIN [Concomitant]
     Active Substance: ATORVASTATIN CALCIUM
  10. BREO ELLIPTA [Concomitant]
     Active Substance: FLUTICASONE FUROATE\VILANTEROL TRIFENATATE
  11. ALLOPURINOL. [Concomitant]
     Active Substance: ALLOPURINOL
  12. SPIRONOLACTONE. [Concomitant]
     Active Substance: SPIRONOLACTONE

REACTIONS (1)
  - Death [None]

NARRATIVE: CASE EVENT DATE: 20190107
